FAERS Safety Report 10378142 (Version 2)
Quarter: 2015Q2

REPORT INFORMATION
  Report Type: Spontaneous
  Country: DK (occurrence: None)
  Receive Date: 20140807
  Receipt Date: 20150414
  Transmission Date: 20150821
  Serious: Yes (Other)
  Sender: FDA-Public Use
  Company Number: 2014080002

PATIENT
  Age: 77 Year
  Sex: Male

DRUGS (5)
  1. DYMISTA [Suspect]
     Active Substance: AZELASTINE HYDROCHLORIDE\FLUTICASONE PROPIONATE
     Indication: RHINITIS
     Dosage: 4 DOSAGE FORMS (2 DOSAGE FORMS,2 IN 1 D),NASAL
     Route: 045
     Dates: start: 20140201, end: 20140202
  2. KALEORID (POTASSIUM CHLORIDE) [Concomitant]
     Active Substance: POTASSIUM CHLORIDE
  3. HJERTEMAGNYL (ACETYLSALICYLIC ACID, MAGNESIUM OXIDE) [Concomitant]
  4. RAMIPRIL. [Concomitant]
     Active Substance: RAMIPRIL
  5. DIURAL (ACETAZOLAMIDE) [Concomitant]

REACTIONS (4)
  - Hypersensitivity [None]
  - Arthralgia [None]
  - Back pain [None]
  - Myalgia [None]

NARRATIVE: CASE EVENT DATE: 20140201
